FAERS Safety Report 7575095-7 (Version None)
Quarter: 2011Q2

REPORT INFORMATION
  Report Type: 
  Country: None (occurrence: None)
  Receive Date: 20110627
  Receipt Date: 20110622
  Transmission Date: 20111010
  Serious: Yes (Death)
  Sender: FDA-Public Use
  Company Number: AU-PFIZER INC-2011075485

PATIENT
  Age: 80 Year
  Sex: Female

DRUGS (11)
  1. CALCIUM CARBONATE [Concomitant]
     Indication: OSTEOARTHRITIS
  2. ACETAMINOPHEN [Concomitant]
     Indication: ANALGESIC THERAPY
  3. AMBRISENTAN [Concomitant]
     Indication: PULMONARY ARTERIAL HYPERTENSION
     Dosage: 10 MG, 1X/DAY
     Route: 048
     Dates: start: 20051115
  4. FUROSEMIDE [Concomitant]
     Dosage: UNK
  5. SPIRONOLACTONE [Concomitant]
     Indication: PULMONARY ARTERIAL HYPERTENSION
     Dosage: UNK
     Dates: start: 20070801
  6. GLUCOSAMINE [Concomitant]
  7. REVATIO [Suspect]
     Indication: PULMONARY ARTERIAL HYPERTENSION
     Dosage: 40 MG, 3X/DAY
     Route: 048
     Dates: start: 20081104
  8. TEMAZEPAM [Concomitant]
  9. DI-GESIC [Concomitant]
     Indication: ANALGESIC THERAPY
  10. DIGOXIN [Concomitant]
     Indication: ATRIAL FIBRILLATION
     Dosage: UNK
     Dates: start: 20071101
  11. WARFARIN [Concomitant]
     Indication: PULMONARY ARTERIAL HYPERTENSION
     Dosage: VARIABLE DOSE

REACTIONS (1)
  - PULMONARY HYPERTENSION [None]
